FAERS Safety Report 7538907-9 (Version None)
Quarter: 2011Q2

REPORT INFORMATION
  Report Type: 
  Country: None (occurrence: None)
  Receive Date: 20110610
  Receipt Date: 20110530
  Transmission Date: 20111010
  Serious: Yes (Hospitalization)
  Sender: FDA-Public Use
  Company Number: JP-JNJFOC-20110603365

PATIENT
  Age: 85 Year
  Sex: Female

DRUGS (3)
  1. LEVOFLOXACIN [Suspect]
     Indication: NASOPHARYNGITIS
     Route: 048
     Dates: start: 20110521, end: 20110524
  2. ACETAMINOPHEN [Concomitant]
     Route: 065
  3. RESPLEN [Concomitant]
     Route: 065

REACTIONS (1)
  - STATUS EPILEPTICUS [None]
